FAERS Safety Report 18114441 (Version 1)
Quarter: 2020Q3

REPORT INFORMATION
  Report Type: Spontaneous
  Country: DE (occurrence: DE)
  Receive Date: 20200805
  Receipt Date: 20200805
  Transmission Date: 20201103
  Serious: Yes (Hospitalization)
  Sender: FDA-Public Use
  Company Number: DE-B.I. PHARMACEUTICALS,INC./RIDGEFIELD-2020-BI-038680

PATIENT
  Sex: Male

DRUGS (2)
  1. OFEV [Suspect]
     Active Substance: NINTEDANIB
     Indication: IDIOPATHIC PULMONARY FIBROSIS
     Route: 065
     Dates: start: 201909
  2. OFEV [Suspect]
     Active Substance: NINTEDANIB
     Dosage: 2X100 MG
     Route: 065
     Dates: start: 2020

REACTIONS (3)
  - Large intestine infection [Unknown]
  - Gastric disorder [Unknown]
  - Liver function test increased [Unknown]
